FAERS Safety Report 8400890-1 (Version None)
Quarter: 2012Q2

REPORT INFORMATION
  Report Type: 
  Country: None (occurrence: None)
  Receive Date: 20120601
  Receipt Date: 20120530
  Transmission Date: 20120825
  Serious: Yes (Other)
  Sender: FDA-Public Use
  Company Number: CH-AMGEN-CHESP2012014070

PATIENT
  Age: 81 Year
  Sex: Female
  Weight: 60 kg

DRUGS (3)
  1. INSULIN [Concomitant]
     Indication: DIABETES MELLITUS
     Dosage: 8 IU, UNK
     Dates: start: 20060101
  2. PROLIA [Suspect]
     Indication: PRODUCT USED FOR UNKNOWN INDICATION
     Dosage: UNK
     Dates: start: 20090801, end: 20100201
  3. ZESTRIL [Concomitant]
     Indication: CORONARY ARTERY DISEASE
     Dosage: 10 MG, UNK
     Dates: start: 20060101

REACTIONS (2)
  - MACULAR DEGENERATION [None]
  - VISUAL IMPAIRMENT [None]
